FAERS Safety Report 4613306-8 (Version None)
Quarter: 2005Q1

REPORT INFORMATION
  Report Type: 
  Country: None (occurrence: None)
  Receive Date: 20050315
  Receipt Date: 20050310
  Transmission Date: 20050727
  Serious: Yes (Death)
  Sender: FDA-Public Use
  Company Number: 200510558GDS

PATIENT
  Age: 69 Year
  Sex: Male

DRUGS (4)
  1. AVELOX [Suspect]
     Indication: PNEUMONIA
     Dosage: 400 MG, QD, ORAL
     Route: 048
     Dates: start: 20050120, end: 20050121
  2. CEFUROXIME [Concomitant]
  3. GENTAMICIN [Concomitant]
  4. KLACID [Concomitant]

REACTIONS (5)
  - CEREBRAL INFARCTION [None]
  - CEREBROVASCULAR ACCIDENT [None]
  - DRUG INEFFECTIVE [None]
  - PNEUMONIA PRIMARY ATYPICAL [None]
  - PULMONARY FIBROSIS [None]
